FAERS Safety Report 8319594-9 (Version None)
Quarter: 2012Q2

REPORT INFORMATION
  Report Type: 
  Country: None (occurrence: None)
  Receive Date: 20120427
  Receipt Date: 20120423
  Transmission Date: 20120825
  Serious: Yes (Death)
  Sender: FDA-Public Use
  Company Number: PHHY2012US035337

PATIENT
  Age: 23 Year
  Sex: Male

DRUGS (12)
  1. IBUPROFEN [Suspect]
  2. VERAPAMIL [Suspect]
  3. WARFARIN SODIUM [Suspect]
  4. CLINDAMYCIN [Suspect]
  5. FEXOFENADINE [Suspect]
  6. HALOPERIDOL [Suspect]
  7. SERUM LIPID REDUCING AGENTS [Suspect]
  8. BUPROPION HCL [Suspect]
  9. BENZTROPINE MESYLATE [Suspect]
  10. CEPHALEXIN [Suspect]
  11. METOPROLOL TARTRATE [Suspect]
  12. MUSCLE RELAXANTS [Suspect]

REACTIONS (1)
  - COMPLETED SUICIDE [None]
